FAERS Safety Report 4407429-6 (Version None)
Quarter: 2004Q3

REPORT INFORMATION
  Report Type: 
  Country: None (occurrence: None)
  Receive Date: 20040721
  Receipt Date: 20040709
  Transmission Date: 20050211
  Serious: Yes (Hospitalization, Other)
  Sender: FDA-Public Use
  Company Number: 2004046788

PATIENT
  Age: 92 Year
  Sex: Female

DRUGS (4)
  1. SERTRALINE HCL [Suspect]
     Indication: DEPRESSION
     Dosage: 50 MG (50 MG, 1 IN 1 D), ORAL
     Route: 048
     Dates: start: 20020101, end: 20040519
  2. ATENOLOL [Concomitant]
  3. RANITIDINE [Concomitant]
  4. LEVOTHYROXINE SODIUM [Concomitant]

REACTIONS (3)
  - BLOOD SODIUM DECREASED [None]
  - FALL [None]
  - FRACTURE [None]
